FAERS Safety Report 7225100-2 (Version None)
Quarter: 2011Q1

REPORT INFORMATION
  Report Type: 
  Country: None (occurrence: None)
  Receive Date: 20110104
  Receipt Date: 20101227
  Transmission Date: 20110831
  Serious: Yes (Life-Threatening)
  Sender: FDA-Public Use
  Company Number: 2010JP007068

PATIENT
  Age: 54 Year
  Sex: Male
  Weight: 63.2 kg

DRUGS (19)
  1. GASPORT (FAMOTIDINE) INJECTION [Suspect]
     Indication: GASTRITIS
     Dosage: 20 MG, UID/QD, IV NOS
     Route: 042
     Dates: start: 20101018, end: 20101101
  2. RENAGEL [Concomitant]
  3. LACTULOSE (LACTULOSE) SYRUP [Concomitant]
  4. CALTAN (CALCIUM CARBONATE) [Concomitant]
  5. DOXAZOSIN MESYLATE [Concomitant]
  6. FUNGUARD (MICAFUNGIN) INJECTION [Suspect]
     Indication: FUNGAL PERITONITIS
     Dosage: 150 MG, UID/QD, IV DRIP
     Route: 041
     Dates: start: 20101010, end: 20101101
  7. SENNOSIDE (SENNOSIDE A+B) [Concomitant]
  8. CINACALCET HYDROCHLORIDE (CINACALCET HYDROCHLORIDE) [Concomitant]
  9. NORVASC (AMLODIPINE BESILATE) ORODISPERSIBLE CR TABLET [Concomitant]
  10. ADALAT (NIFEDIPINE) SLOW RELEASE TABLET [Concomitant]
  11. MASHI-NIN-GAN (CHINESE HERBAL MEDICINE) [Concomitant]
  12. MUCOSTA (REBAMIPIDE) [Concomitant]
  13. NAUZELIN (DOMPERIDONE) [Concomitant]
  14. CODEINE PHOSPHATE (CODEINE PHOSPHATE) [Concomitant]
  15. BAKUMONDOUTO (HERBAL EXTRACT NOS) [Concomitant]
  16. OLMETEC (OLMESARTAN MEDOXOMIL) [Concomitant]
  17. ALFAROL (ALFACALCIDOL) [Concomitant]
  18. PLAVIX [Concomitant]
  19. PANTOL (PANTHENOL) INJECTION [Concomitant]

REACTIONS (1)
  - AGRANULOCYTOSIS [None]
